FAERS Safety Report 7954766-4 (Version None)
Quarter: 2011Q4

REPORT INFORMATION
  Report Type: 
  Country: None (occurrence: None)
  Receive Date: 20111202
  Receipt Date: 20111130
  Transmission Date: 20120403
  Serious: Yes (Death, Hospitalization)
  Sender: FDA-Public Use
  Company Number: TW-ROCHE-1017444

PATIENT
  Sex: Female

DRUGS (2)
  1. RIBAVARIN [Suspect]
     Indication: HEPATITIS C
     Route: 048
     Dates: start: 20080313, end: 20081016
  2. PEGASYS [Suspect]
     Indication: HEPATITIS C
     Route: 058
     Dates: start: 20080313, end: 20081016

REACTIONS (4)
  - TRANSFUSION REACTION [None]
  - ACUTE RESPIRATORY DISTRESS SYNDROME [None]
  - GINGIVAL BLEEDING [None]
  - THROMBOCYTOPENIA [None]
